FAERS Safety Report 6305277-3 (Version None)
Quarter: 2009Q3

REPORT INFORMATION
  Report Type: 
  Country: None (occurrence: None)
  Receive Date: 20090807
  Receipt Date: 20090728
  Transmission Date: 20100115
  Serious: Yes (Disabling)
  Sender: FDA-Public Use
  Company Number: 1000007969

PATIENT
  Age: 58 Year
  Sex: Female
  Weight: 60 kg

DRUGS (3)
  1. ESCITALOPRAM [Suspect]
     Indication: DEPRESSION
     Dosage: 10 MG (10 MG, 1 IN 1 D), ORAL
     Route: 048
     Dates: start: 20090625, end: 20090707
  2. ZOLPIDEM [Concomitant]
  3. LEXOMIL (TABLETS) [Concomitant]

REACTIONS (9)
  - AGITATION [None]
  - ANHEDONIA [None]
  - APATHY [None]
  - CRYING [None]
  - DEPRESSED MOOD [None]
  - FEELING GUILTY [None]
  - INSOMNIA [None]
  - OBSESSIVE RUMINATION [None]
  - OBSESSIVE THOUGHTS [None]
